FAERS Safety Report 17191531 (Version 1)
Quarter: 2019Q4

REPORT INFORMATION
  Report Type: Spontaneous
  Country: US (occurrence: US)
  Receive Date: 20191221
  Receipt Date: 20191221
  Transmission Date: 20200122
  Serious: Yes (Disabling)
  Sender: FDA-Public Use
  Company Number: None

PATIENT
  Age: 54 Year
  Sex: Female
  Weight: 63 kg

DRUGS (4)
  1. R LIPOIC ACID [Concomitant]
  2. ARTHROCEN [Concomitant]
  3. CIPRO [Suspect]
     Active Substance: CIPROFLOXACIN HYDROCHLORIDE
     Indication: URINARY TRACT INFECTION
     Dosage: ?          QUANTITY:1 CAPSULE(S);?
     Route: 048
     Dates: start: 20180414, end: 20180419
  4. METHYLFOLATE [Concomitant]
     Active Substance: LEVOMEFOLATE CALCIUM

REACTIONS (5)
  - Tendonitis [None]
  - Tendon injury [None]
  - Neuropathy peripheral [None]
  - Product complaint [None]
  - Sensorimotor disorder [None]

NARRATIVE: CASE EVENT DATE: 20180414
